FAERS Safety Report 7363894-6 (Version None)
Quarter: 2011Q1

REPORT INFORMATION
  Report Type: 
  Country: None (occurrence: None)
  Receive Date: 20110321
  Receipt Date: 20110310
  Transmission Date: 20110831
  Serious: No
  Sender: FDA-Public Use
  Company Number: US-ROCHE-765173

PATIENT
  Sex: Female
  Weight: 11.8 kg

DRUGS (1)
  1. TAMIFLU [Suspect]
     Route: 048
     Dates: start: 20110310

REACTIONS (2)
  - DRUG DISPENSING ERROR [None]
  - NO ADVERSE EVENT [None]
